FAERS Safety Report 5934823-4 (Version None)
Quarter: 2008Q4

REPORT INFORMATION
  Report Type: 
  Country: None (occurrence: None)
  Receive Date: 20081027
  Receipt Date: 20081021
  Transmission Date: 20090506
  Serious: Yes (Hospitalization)
  Sender: FDA-Public Use
  Company Number: 2008AL009964

PATIENT
  Age: 74 Year
  Sex: Male
  Weight: 86.1834 kg

DRUGS (7)
  1. DIGOXIN [Suspect]
     Indication: CHEST PAIN
     Dosage: 0.125 MG, DAILY, PO
     Route: 048
     Dates: start: 20080318, end: 20080327
  2. DIGOXIN [Suspect]
     Indication: DIZZINESS
     Dosage: 0.125 MG, DAILY, PO
     Route: 048
     Dates: start: 20080318, end: 20080327
  3. DIGOXIN [Suspect]
     Indication: PALPITATIONS
     Dosage: 0.125 MG, DAILY, PO
     Route: 048
     Dates: start: 20080318, end: 20080327
  4. OXYCODONE HCL [Concomitant]
  5. LISINOPRIL [Concomitant]
  6. PLAVIX [Concomitant]
  7. 8 OTHER UNSPECIFED MEDICATIONS [Concomitant]

REACTIONS (14)
  - ASTHENIA [None]
  - CHEST PAIN [None]
  - CONTUSION [None]
  - DIZZINESS [None]
  - FALL [None]
  - GAIT DISTURBANCE [None]
  - HEAD INJURY [None]
  - HEADACHE [None]
  - INFECTION [None]
  - JOINT INJURY [None]
  - MUSCULOSKELETAL DISORDER [None]
  - NEPHROLITHIASIS [None]
  - PAIN [None]
  - TREMOR [None]
